FAERS Safety Report 9430599 (Version 2)
Quarter: 2013Q4

REPORT INFORMATION
  Report Type: Spontaneous
  Country: US (occurrence: US)
  Receive Date: 20130730
  Receipt Date: 20131011
  Transmission Date: 20140711
  Serious: Yes (Other)
  Sender: FDA-Public Use
  Company Number: US-JNJFOC-20130713829

PATIENT
  Age: 54 Year
  Sex: Female

DRUGS (1)
  1. TRAMADOL ER [Suspect]
     Indication: TOOTHACHE
     Dosage: EVERY FOUR TO SIX HOURS AS NEEDED
     Route: 048

REACTIONS (4)
  - Paralysis [Unknown]
  - Anaphylactic shock [Unknown]
  - Muscle spasms [Not Recovered/Not Resolved]
  - Pain [Not Recovered/Not Resolved]
